FAERS Safety Report 9062787 (Version 1)
Quarter: 2013Q1

REPORT INFORMATION
  Report Type: Spontaneous
  Country: IT (occurrence: IT)
  Receive Date: 20130128
  Receipt Date: 20130128
  Transmission Date: 20140127
  Serious: Yes (Hospitalization)
  Sender: FDA-Public Use
  Company Number: IT-BRISTOL-MYERS SQUIBB COMPANY-17312224

PATIENT
  Age: 80 Year
  Sex: Male

DRUGS (9)
  1. COUMADIN TABS 5 MG [Suspect]
     Indication: ANTICOAGULANT THERAPY
     Route: 048
     Dates: start: 20120101
  2. TRIATEC [Concomitant]
     Dosage: TABS?5MG ALSO TAKEN
  3. TORVAST [Concomitant]
     Dosage: TABS
  4. AVODART [Concomitant]
     Dosage: TABS
  5. SPIRIVA [Concomitant]
     Dosage: TABS
  6. LASIX [Concomitant]
     Dosage: TABS
  7. KANRENOL [Concomitant]
     Dosage: TABS
  8. CARDICOR [Concomitant]
     Dosage: TABS
  9. PANTORC [Concomitant]
     Dosage: TABS

REACTIONS (2)
  - Oedema peripheral [Recovering/Resolving]
  - Erythema [Recovering/Resolving]
